FAERS Safety Report 4676500-6 (Version None)
Quarter: 2005Q2

REPORT INFORMATION
  Report Type: 
  Country: None (occurrence: None)
  Receive Date: 20050525
  Receipt Date: 20050513
  Transmission Date: 20051028
  Serious: Yes (Hospitalization)
  Sender: FDA-Public Use
  Company Number: 200511557GDS

PATIENT
  Age: 63 Year
  Sex: Female

DRUGS (4)
  1. BAYCIP (CIPROFLOXACIN HYDROCHLORIDE) [Suspect]
     Indication: URINARY TRACT INFECTION
     Dosage: 1000 MG, TOTAL DAILY, ORAL
     Route: 048
     Dates: start: 20040729, end: 20040809
  2. ALDACTONE [Concomitant]
  3. EMCONCORZAAR [Concomitant]
  4. SEGURIL [Concomitant]

REACTIONS (3)
  - PURPURA [None]
  - RENAL FAILURE ACUTE [None]
  - VASCULITIS [None]
